FAERS Safety Report 7408134-4 (Version None)
Quarter: 2011Q2

REPORT INFORMATION
  Report Type: 
  Country: None (occurrence: None)
  Receive Date: 20110412
  Receipt Date: 20110404
  Transmission Date: 20111010
  Serious: Yes (Other)
  Sender: FDA-Public Use
  Company Number: US-SANOFI-AVENTIS-2011SA020736

PATIENT
  Age: 33 Year
  Sex: Male

DRUGS (1)
  1. LOVENOX [Suspect]
     Indication: DEEP VEIN THROMBOSIS
     Route: 065
     Dates: start: 20080101, end: 20090101

REACTIONS (3)
  - LOCKED-IN SYNDROME [None]
  - CEREBRAL HAEMORRHAGE [None]
  - QUADRIPLEGIA [None]
